FAERS Safety Report 9487753 (Version 2)
Quarter: 2013Q3

REPORT INFORMATION
  Report Type: Spontaneous
  Country: US (occurrence: US)
  Receive Date: 20130725
  Receipt Date: 20130725
  Transmission Date: 20140515
  Serious: No
  Sender: FDA-Public Use
  Company Number: US-GLAXOSMITHKLINE-A0899190A

PATIENT
  Age: 65 Year
  Sex: Female

DRUGS (5)
  1. AVANDIA [Suspect]
     Indication: TYPE 2 DIABETES MELLITUS
     Dosage: 4MG TWICE PER DAY
     Route: 048
     Dates: start: 20061009, end: 20070629
  2. LOTREL [Concomitant]
     Indication: HYPERTENSION
  3. NAPROXEN [Concomitant]
     Indication: OSTEOARTHRITIS
     Dosage: 500MG TWICE PER DAY
  4. NEXIUM [Concomitant]
  5. HYDROCHLOROTHIAZIDE [Concomitant]

REACTIONS (2)
  - Chest pain [Not Recovered/Not Resolved]
  - Hypertension [Unknown]
